FAERS Safety Report 14534642 (Version 3)
Quarter: 2018Q1

REPORT INFORMATION
  Report Type: Spontaneous
  Country: JP (occurrence: JP)
  Receive Date: 20180215
  Receipt Date: 20180302
  Transmission Date: 20180509
  Serious: Yes (Other)
  Sender: FDA-Public Use
  Company Number: JP-GLAXOSMITHKLINE-JP2018JPN022267

PATIENT
  Age: 46 Year
  Sex: Male

DRUGS (7)
  1. VALTREX [Suspect]
     Active Substance: VALACYCLOVIR HYDROCHLORIDE
     Indication: PROPHYLAXIS
  2. DEPAS TABLETS [Concomitant]
     Active Substance: ETIZOLAM
     Indication: MUSCULOSKELETAL STIFFNESS
     Dosage: 5 MG, QD
  3. MUCOSTA TABLETS [Concomitant]
     Dosage: UNK, TID
  4. VALTREX [Suspect]
     Active Substance: VALACYCLOVIR HYDROCHLORIDE
     Indication: HERPES VIRUS INFECTION
     Dosage: 500 MG, QD
     Route: 048
  5. GOSHUYUTO [Concomitant]
     Active Substance: HERBALS
     Indication: HEADACHE
     Dosage: UNK
     Dates: start: 20180116
  6. IMIGRAN [Suspect]
     Active Substance: SUMATRIPTAN SUCCINATE
     Indication: MIGRAINE
     Dosage: 50 MG, PRN
     Route: 048
     Dates: start: 20180116, end: 20180208
  7. DEPAS TABLETS [Concomitant]
     Active Substance: ETIZOLAM
     Indication: TENSION HEADACHE

REACTIONS (11)
  - Contusion [Unknown]
  - Malaise [Unknown]
  - Discomfort [Recovering/Resolving]
  - Loss of consciousness [Recovered/Resolved]
  - Nausea [Recovering/Resolving]
  - Facial pain [Recovering/Resolving]
  - Palpitations [Recovering/Resolving]
  - Fall [Recovering/Resolving]
  - Migraine [Unknown]
  - Dizziness [Recovering/Resolving]
  - Musculoskeletal pain [Recovering/Resolving]

NARRATIVE: CASE EVENT DATE: 20180208
